FAERS Safety Report 13501543 (Version 3)
Quarter: 2019Q3

REPORT INFORMATION
  Report Type: Report from Study
  Country: JP (occurrence: JP)
  Receive Date: 20170501
  Receipt Date: 20190925
  Transmission Date: 20191004
  Serious: Yes (Hospitalization, Disabling, Other)
  Sender: FDA-Public Use
  Company Number: JP-ALXN-A201704395AA

PATIENT

DRUGS (2)
  1. STRENSIQ [Suspect]
     Active Substance: ASFOTASE ALFA
     Indication: HYPOPHOSPHATASIA
     Dosage: 2 MG/KG, TIW
     Route: 058
     Dates: start: 20160511
  2. SYNAGIS [Concomitant]
     Active Substance: PALIVIZUMAB
     Indication: PROPHYLAXIS
     Dosage: 0.7 ML, QD
     Route: 058
     Dates: start: 20161031, end: 20170330

REACTIONS (4)
  - Apnoea [Unknown]
  - Nephrocalcinosis [Unknown]
  - Auditory disorder [Not Recovered/Not Resolved]
  - Gastroenteritis [Recovered/Resolved]
